FAERS Safety Report 23420339 (Version 5)
Quarter: 2024Q1

REPORT INFORMATION
  Report Type: Spontaneous
  Country: US (occurrence: US)
  Receive Date: 20240119
  Receipt Date: 20240217
  Transmission Date: 20240409
  Serious: Yes (Hospitalization)
  Sender: FDA-Public Use
  Company Number: US-HETERO-HET2024US00111

PATIENT
  Age: 77 Year
  Sex: Male
  Weight: 96.615 kg

DRUGS (1)
  1. DABIGATRAN ETEXILATE [Suspect]
     Active Substance: DABIGATRAN ETEXILATE
     Indication: Anticoagulant therapy
     Dosage: 150 MILLIGRAM, BID
     Route: 048
     Dates: start: 20240104, end: 20240111

REACTIONS (4)
  - Dizziness [Not Recovered/Not Resolved]
  - Peripheral swelling [Not Recovered/Not Resolved]
  - Headache [Not Recovered/Not Resolved]
  - Blister [Not Recovered/Not Resolved]

NARRATIVE: CASE EVENT DATE: 20240104
